FAERS Safety Report 6141536-5 (Version None)
Quarter: 2009Q1

REPORT INFORMATION
  Report Type: 
  Country: None (occurrence: None)
  Receive Date: 20090331
  Receipt Date: 20090316
  Transmission Date: 20090719
  Serious: Yes (Hospitalization)
  Sender: FDA-Public Use
  Company Number: 230029M05GBR

PATIENT
  Age: 38 Year
  Sex: Female

DRUGS (2)
  1. REBIF [Suspect]
     Indication: MULTIPLE SCLEROSIS
     Dosage: 44 MCG, 3 IN 1 WEEKS, SUBCUTANEOUS, 44 MCG, 3 IN 1 WEEKS, SUBCUTANEOUS
     Route: 058
     Dates: start: 20030701, end: 20050713
  2. GABAPENTIN [Concomitant]

REACTIONS (6)
  - CERVICAL DYSPLASIA [None]
  - DRUG DOSE OMISSION [None]
  - OVARIAN CANCER [None]
  - UMBILICAL HERNIA [None]
  - UTERINE CANCER [None]
  - WHITE BLOOD CELL COUNT DECREASED [None]
